FAERS Safety Report 9530787 (Version 1)
Quarter: 2013Q1

REPORT INFORMATION
  Report Type: Spontaneous
  Country: GB (occurrence: None)
  Receive Date: 20130315
  Receipt Date: 20130315
  Transmission Date: 20140127
  Serious: Yes (Hospitalization)
  Sender: FDA-Public Use
  Company Number: GB-JNJFOC-20121213987

PATIENT
  Age: 71 Year
  Sex: Male
  Weight: 110.7 kg

DRUGS (7)
  1. IBUPROFEN (IBUPROFEN) UNSPECIFIED [Suspect]
     Indication: PRODUCT USED FOR UNKNOWN INDICATION
     Dosage: 400 MG, IN 1 AS NECESSARY, UNKNOWN
     Dates: start: 20100114, end: 20100703
  2. PLAVIX (CLOPIDOGREL) UNSPECIFIED [Suspect]
     Dates: start: 200910, end: 20100703
  3. ACETYLSALICYLIC ACID (ACETYLSALICYLIC ACID) UNSPECIFIED [Concomitant]
     Dosage: 325 MG, 1 IN 1 DAY, UNKNOWN
     Dates: start: 1997, end: 20070703
  4. LOPRESSOR (METOPROLOL TARTRATE) [Concomitant]
  5. ATORVASTATIN [Concomitant]
  6. AMLODIPINE [Concomitant]
  7. ALLOPURINOL [Concomitant]

REACTIONS (1)
  - Gastrointestinal haemorrhage [None]
